FAERS Safety Report 6199736-4 (Version None)
Quarter: 2009Q2

REPORT INFORMATION
  Report Type: 
  Country: None (occurrence: None)
  Receive Date: 20090519
  Receipt Date: 20090507
  Transmission Date: 20091009
  Serious: Yes (Hospitalization)
  Sender: FDA-Public Use
  Company Number: 2009AL003182

PATIENT
  Age: 47 Year
  Sex: Male

DRUGS (14)
  1. FEVERALL  (ACETAMINOPHEN RECTAL SUPPOSITORIES) 650 MG (ALPHARMA) (FEVE [Suspect]
     Route: 054
     Dates: end: 20090409
  2. ACETAMINOPHEN AND CODEINE PHOSPHATE [Suspect]
     Dates: end: 20090409
  3. GLIMEPIRIDE [Concomitant]
  4. ZOPICLONE [Concomitant]
  5. METOPROLOL SUCCINATE [Concomitant]
  6. LISINOPRIL [Concomitant]
  7. METFORMIN HCL [Concomitant]
  8. VAILERGAN [Concomitant]
  9. BRONKYL [Concomitant]
  10. DIURAL [Concomitant]
  11. VIVAL [Concomitant]
  12. ALBYL-E [Concomitant]
  13. LIPITOR [Concomitant]
  14. CIPRALEX [Concomitant]

REACTIONS (1)
  - HEPATITIS ACUTE [None]
